FAERS Safety Report 7711437-7 (Version None)
Quarter: 2011Q3

REPORT INFORMATION
  Report Type: 
  Country: None (occurrence: None)
  Receive Date: 20110826
  Receipt Date: 20110822
  Transmission Date: 20111222
  Serious: Yes (Death)
  Sender: FDA-Public Use
  Company Number: US-ELI_LILLY_AND_COMPANY-US201108004352

PATIENT
  Age: 78 Year
  Sex: Male

DRUGS (7)
  1. VITAMIN B-12 [Concomitant]
  2. DEXAMETHASONE [Concomitant]
  3. ASPIRIN [Concomitant]
     Dosage: LOW DOSE
  4. REGLAN [Concomitant]
     Dosage: 10 MG, UNK
  5. ALIMTA [Suspect]
     Indication: NON-SMALL CELL LUNG CANCER
     Dosage: 500 MG/M2, UNKNOWN
     Dates: start: 20110519, end: 20110630
  6. BENADRYL [Concomitant]
     Dosage: 12.5/5ML
  7. FOLIC ACID [Concomitant]

REACTIONS (1)
  - PULMONARY EMBOLISM [None]
